FAERS Safety Report 7869445-1 (Version None)
Quarter: 2011Q4

REPORT INFORMATION
  Report Type: 
  Country: None (occurrence: None)
  Receive Date: 20111028
  Receipt Date: 20110103
  Transmission Date: 20120403
  Serious: No
  Sender: FDA-Public Use
  Company Number: US-AMGEN-USASP2010011835

PATIENT
  Age: 25 Year
  Sex: Female

DRUGS (1)
  1. ENBREL [Suspect]
     Indication: PSORIASIS
     Dosage: 50 MG, QWK
     Route: 058
     Dates: start: 20101212, end: 20101220

REACTIONS (11)
  - PAIN IN EXTREMITY [None]
  - VOMITING [None]
  - GAIT DISTURBANCE [None]
  - DYSPNOEA [None]
  - INJECTION SITE ERYTHEMA [None]
  - ASTHENIA [None]
  - INJECTION SITE SWELLING [None]
  - PYREXIA [None]
  - NAUSEA [None]
  - FATIGUE [None]
  - DIARRHOEA [None]
